FAERS Safety Report 5753987-9 (Version None)
Quarter: 2008Q2

REPORT INFORMATION
  Report Type: 
  Country: None (occurrence: None)
  Receive Date: 20080527
  Receipt Date: 20080527
  Transmission Date: 20081010
  Serious: Yes (Other)
  Sender: FDA-Public Use
  Company Number: None

PATIENT
  Sex: Female
  Weight: 40.8237 kg

DRUGS (8)
  1. ALAVERT [Suspect]
     Indication: LACRIMATION INCREASED
     Dosage: 10 MG X 1 PO
     Route: 048
     Dates: start: 20080526, end: 20080526
  2. ALAVERT [Suspect]
     Indication: RHINORRHOEA
     Dosage: 10 MG X 1 PO
     Route: 048
     Dates: start: 20080526, end: 20080526
  3. ALAVERT [Suspect]
     Indication: SNEEZING
     Dosage: 10 MG X 1 PO
     Route: 048
     Dates: start: 20080526, end: 20080526
  4. MEMBER'S MARK CALCIUM CITRATE [Concomitant]
  5. CHOLECALCIFEROL [Concomitant]
  6. MATURE MULTI VITAMIN [Concomitant]
  7. RITE-AID FISH OIL [Concomitant]
  8. NATURE'S BOUNTY INOSITOL [Concomitant]

REACTIONS (3)
  - EYE ROLLING [None]
  - LOSS OF CONSCIOUSNESS [None]
  - VOMITING [None]
